FAERS Safety Report 9645680 (Version 2)
Quarter: 2013Q4

REPORT INFORMATION
  Report Type: Spontaneous
  Country: US (occurrence: US)
  Receive Date: 20131025
  Receipt Date: 20131219
  Transmission Date: 20140711
  Serious: Yes (Hospitalization, Other)
  Sender: FDA-Public Use
  Company Number: US-WATSON-2013-18853

PATIENT
  Age: 71 Year
  Sex: Male
  Weight: 77 kg

DRUGS (4)
  1. RAPAFLO (WATSON LABORATORIES) [Suspect]
     Indication: URINE FLOW DECREASED
     Dosage: 1 DF, DAILY
     Route: 048
     Dates: start: 20130928, end: 20130929
  2. MERCAPRINE [Concomitant]
     Indication: COLITIS ULCERATIVE
     Dosage: 75 MG, DAILY
     Route: 048
  3. SYNTHROID [Concomitant]
     Indication: THYROID DISORDER
     Dosage: 50 MCG POR DAILY
     Route: 048
  4. BALSALAZIDE DISODIUM [Concomitant]
     Indication: COLITIS ULCERATIVE
     Dosage: 1500 MG, UNKNOWN
     Route: 048

REACTIONS (8)
  - Loss of consciousness [Recovered/Resolved]
  - Toxic encephalopathy [Unknown]
  - Convulsion [Unknown]
  - Aphasia [Recovered/Resolved]
  - Hypokinesia [Recovered/Resolved]
  - Drug interaction [Recovered/Resolved]
  - Fatigue [Not Recovered/Not Resolved]
  - Syncope [Unknown]
